FAERS Safety Report 8404499-5 (Version None)
Quarter: 2012Q2

REPORT INFORMATION
  Report Type: 
  Country: None (occurrence: None)
  Receive Date: 20120601
  Receipt Date: 20111205
  Transmission Date: 20120825
  Serious: No
  Sender: FDA-Public Use
  Company Number: US-NOVEN-11US003723

PATIENT
  Sex: Female

DRUGS (1)
  1. DAYTRANA [Suspect]
     Indication: ATTENTION DEFICIT/HYPERACTIVITY DISORDER
     Dosage: 15 MG, QD
     Route: 062
     Dates: start: 20070101

REACTIONS (11)
  - SUICIDAL BEHAVIOUR [None]
  - ANGER [None]
  - DRUG INEFFECTIVE [None]
  - AFFECT LABILITY [None]
  - SOCIAL AVOIDANT BEHAVIOUR [None]
  - DELUSIONAL PERCEPTION [None]
  - INCORRECT DRUG ADMINISTRATION DURATION [None]
  - DERMATILLOMANIA [None]
  - AGGRESSION [None]
  - DRUG PRESCRIBING ERROR [None]
  - WEIGHT DECREASED [None]
